FAERS Safety Report 8312026-6 (Version None)
Quarter: 2012Q2

REPORT INFORMATION
  Report Type: 
  Country: None (occurrence: None)
  Receive Date: 20120425
  Receipt Date: 20120412
  Transmission Date: 20120825
  Serious: Yes (Hospitalization, Other)
  Sender: FDA-Public Use
  Company Number: SK-ELI_LILLY_AND_COMPANY-SK201203000305

PATIENT
  Sex: Male
  Weight: 80 kg

DRUGS (3)
  1. OLANZAPINE [Suspect]
     Indication: SCHIZOPHRENIA
     Dosage: 405 MG, UNK
     Route: 030
     Dates: start: 20120130
  2. LITHIUM CARBONATE [Concomitant]
     Dosage: UNK
     Dates: start: 20111014
  3. BIPERIDEN HYDROCHLORIDE TAB [Concomitant]
     Dosage: UNK
     Dates: start: 20111014

REACTIONS (10)
  - LOSS OF CONSCIOUSNESS [None]
  - HYPERTENSION [None]
  - CONFUSIONAL STATE [None]
  - SEDATION [None]
  - SOMNOLENCE [None]
  - AGITATION [None]
  - DISORIENTATION [None]
  - SALIVARY HYPERSECRETION [None]
  - STUPOR [None]
  - EXTRAPYRAMIDAL DISORDER [None]
